FAERS Safety Report 9384842 (Version 2)
Quarter: 2014Q1

REPORT INFORMATION
  Report Type: Spontaneous
  Country: US (occurrence: US)
  Receive Date: 20130705
  Receipt Date: 20140123
  Transmission Date: 20141002
  Serious: No
  Sender: FDA-Public Use
  Company Number: US-PFIZER INC-2013197529

PATIENT
  Age: 69 Year
  Sex: Female
  Weight: 136 kg

DRUGS (26)
  1. LYRICA [Suspect]
     Indication: FIBROMYALGIA
     Dosage: 75 MG, 2X/DAY
  2. GLYNASE [Suspect]
     Indication: DIABETES MELLITUS
     Dosage: 6 MG, 2X/DAY
     Route: 048
  3. TIKOSYN [Suspect]
     Indication: ATRIAL FIBRILLATION
     Dosage: 500 UG, 2X/DAY
     Route: 048
  4. ALDACTONE [Suspect]
     Indication: HYPERTENSION
     Dosage: UNK
  5. ASPIRIN [Concomitant]
     Dosage: 81 MG, 1X/DAY
     Route: 048
  6. CRESTOR [Concomitant]
     Dosage: 20 MG, 1X/DAY AT BEDTIME
     Route: 048
  7. FOLIC ACID [Concomitant]
     Dosage: 200 UG, 1X/DAY
     Route: 048
  8. FUROSEMIDE [Concomitant]
     Dosage: 40 MG, 1X/DAY
     Route: 048
  9. HYDROCODONE W/ACETAMINOPHEN [Concomitant]
     Dosage: 5/500 MG, AS NEEDED
  10. IPRATROPIUM BROMIDE [Concomitant]
     Dosage: 0.5MG/0.3 MG ONCE IN THE EVENING
     Route: 048
  11. IRON [Concomitant]
     Dosage: 40 MG, DAILY
     Route: 048
  12. JANUVIA [Concomitant]
     Dosage: 100 MG, 1X/DAY
     Route: 048
  13. LANTUS [Concomitant]
     Dosage: 100 UNITS/ML, 1X/DAY, 12 UNITS IN THE EVENING
     Route: 058
  14. NEXIUM [Concomitant]
     Dosage: 40 MG, 1X/DAY
     Route: 048
  15. PLAVIX [Concomitant]
     Dosage: 75 MG, 1X/DAY
     Route: 048
  16. SYMBICORT [Concomitant]
     Dosage: (BUDESONIDE 160 MCG AND FORMOTEROL FUMARATE 4.5 MCG) DAILY
     Route: 048
  17. XANAX [Concomitant]
     Dosage: 0.25 MG, 1X/DAY AT BEDTIME
     Route: 048
  18. ISOSORBIDE MONONITRATE [Concomitant]
     Dosage: 30 MG, 1X/DAY
     Route: 048
  19. NEURONTIN [Concomitant]
     Dosage: 100 MG, 2X/DAY
     Route: 048
  20. OCUVITE [Concomitant]
     Dosage: 1 DF, 1X/DAY
     Route: 048
  21. TOPROL XL [Concomitant]
     Dosage: 50 MG, 1X/DAY
     Route: 048
  22. METFORMIN [Concomitant]
     Dosage: 1000 MG, 2X/DAY
  23. FENTANYL [Concomitant]
     Dosage: 25 MG, CHANGE EVERY THREE DAYS
  24. TIZANIDINE HYDROCHLORIDE [Concomitant]
     Dosage: 8 MG, 1X/DAY (TAKE TWO TABLETS AT NIGHT)
  25. NORCO [Concomitant]
     Dosage: 10 MG, 4X/DAY
     Route: 048
  26. IMDUR [Concomitant]
     Dosage: 30 MG, 1X/DAY
     Route: 048

REACTIONS (2)
  - Restless legs syndrome [Recovered/Resolved]
  - Malaise [Recovered/Resolved]
